FAERS Safety Report 9009945 (Version 1)
Quarter: 2013Q1

REPORT INFORMATION
  Report Type: Spontaneous
  Country: DE (occurrence: DE)
  Receive Date: 20130110
  Receipt Date: 20130110
  Transmission Date: 20140127
  Serious: Yes (Other)
  Sender: FDA-Public Use
  Company Number: DE-B.I. PHARMACEUTICALS,INC./RIDGEFIELD-2012-DE-03044DE

PATIENT
  Age: 78 Year
  Sex: Female
  Weight: 50 kg

DRUGS (8)
  1. PRADAXA [Suspect]
     Indication: ATRIAL FIBRILLATION
     Dosage: 220 MG
     Route: 048
     Dates: start: 20121214
  2. LAMOTRIGIN [Concomitant]
  3. AMLODIPIN [Concomitant]
  4. PANTOPRAZOL [Concomitant]
  5. BISOPROLOL [Concomitant]
  6. SIMVASTATIN [Concomitant]
  7. PILIDIN [Concomitant]
  8. CLEXANE [Concomitant]

REACTIONS (3)
  - Venous thrombosis [Not Recovered/Not Resolved]
  - Haemorrhage [Not Recovered/Not Resolved]
  - Pain in extremity [Not Recovered/Not Resolved]
